FAERS Safety Report 13946046 (Version 1)
Quarter: 2017Q3

REPORT INFORMATION
  Report Type: Spontaneous
  Country: GB (occurrence: GB)
  Receive Date: 20170907
  Receipt Date: 20170907
  Transmission Date: 20171128
  Serious: Yes (Other)
  Sender: FDA-Public Use
  Company Number: GB-ACCORD-058007

PATIENT
  Sex: Male

DRUGS (4)
  1. PACLITAXEL/PACLITAXEL LIPOSOME [Suspect]
     Active Substance: PACLITAXEL
     Indication: NONGERMINOMATOUS GERM CELL TUMOUR OF THE CNS
     Dosage: CYCLIC ON 22-NOV-2016, 07-DEC-2016, 05-JAN-2017
     Dates: start: 20161122
  2. GEMCITABINE/GEMCITABINE HYDROCHLORIDE [Suspect]
     Active Substance: GEMCITABINE\GEMCITABINE HYDROCHLORIDE
     Indication: NONGERMINOMATOUS GERM CELL TUMOUR OF THE CNS
     Dosage: CYCLIC ON 22-NOV-2016, 07-DEC-2016, 05-JAN-2017
     Dates: start: 20161122
  3. PLERIXAFOR [Concomitant]
     Active Substance: PLERIXAFOR
     Indication: HAEMATOPOIETIC STEM CELL MOBILISATION
  4. OXALIPLATIN SANDOZ [Suspect]
     Active Substance: OXALIPLATIN
     Indication: NONGERMINOMATOUS GERM CELL TUMOUR OF THE CNS
     Dosage: CYCLIC ON 22-NOV-2016, 07-DEC-2016, 05-JAN-2017
     Dates: start: 20161122

REACTIONS (3)
  - Pancytopenia [Unknown]
  - Brain teratoma [Unknown]
  - Off label use [Unknown]
